FAERS Safety Report 12051260 (Version 2)
Quarter: 2016Q2

REPORT INFORMATION
  Report Type: Spontaneous
  Country: US (occurrence: US)
  Receive Date: 20160209
  Receipt Date: 20160413
  Transmission Date: 20160815
  Serious: Yes (Death)
  Sender: FDA-Public Use
  Company Number: PHEH2016US002938

PATIENT
  Age: 54 Year
  Sex: Female

DRUGS (1)
  1. ZYKADIA [Suspect]
     Active Substance: CERITINIB
     Indication: NON-SMALL CELL LUNG CANCER
     Dosage: UNK
     Route: 048

REACTIONS (2)
  - Diarrhoea [Unknown]
  - Death [Fatal]
